FAERS Safety Report 23369641 (Version 1)
Quarter: 2024Q1

REPORT INFORMATION
  Report Type: Report from Study
  Country: None (occurrence: CN)
  Receive Date: 20240105
  Receipt Date: 20240105
  Transmission Date: 20240409
  Serious: Yes (Hospitalization)
  Sender: FDA-Public Use
  Company Number: CN-Jiangsu Hengrui Medicine Co., Ltd.-2150220

PATIENT
  Age: 63 Year
  Sex: Female
  Weight: 58.8 kg

DRUGS (5)
  1. OXALIPLATIN [Suspect]
     Active Substance: OXALIPLATIN
     Indication: Colorectal cancer
     Route: 041
     Dates: start: 20231019, end: 20231019
  2. IRINOTECAN HYDROCHLORIDE [Suspect]
     Active Substance: IRINOTECAN HYDROCHLORIDE
     Route: 041
     Dates: start: 20231019, end: 20231019
  3. BEVACIZUMAB [Suspect]
     Active Substance: BEVACIZUMAB
     Dates: start: 20231019, end: 20231019
  4. LEUCOVORIN CALCIUM [Suspect]
     Active Substance: LEUCOVORIN CALCIUM
     Route: 041
     Dates: start: 20231019, end: 20231019
  5. FLUOROURACIL [Suspect]
     Active Substance: FLUOROURACIL
     Route: 042
     Dates: start: 20231019, end: 20231021

REACTIONS (1)
  - Gastroenteritis [Recovered/Resolved]

NARRATIVE: CASE EVENT DATE: 20231101
